FAERS Safety Report 16855493 (Version 1)
Quarter: 2019Q3

REPORT INFORMATION
  Report Type: Spontaneous
  Country: US (occurrence: US)
  Receive Date: 20190926
  Receipt Date: 20190926
  Transmission Date: 20191005
  Serious: No
  Sender: FDA-Public Use
  Company Number: US-MYLANLABS-2019M1086634

PATIENT
  Sex: Female
  Weight: 50 kg

DRUGS (1)
  1. SCOPOLAMINE TRANSDERMAL SYSTEM [Suspect]
     Active Substance: SCOPOLAMINE
     Indication: GASTROOESOPHAGEAL REFLUX DISEASE
     Dosage: 1.5 MILLIGRAM (EVERY 3 DAYS)
     Route: 062
     Dates: start: 20180101

REACTIONS (2)
  - Dry mouth [Recovered/Resolved]
  - Dry throat [Recovered/Resolved]

NARRATIVE: CASE EVENT DATE: 20180101
